FAERS Safety Report 8607089-4 (Version None)
Quarter: 2012Q3

REPORT INFORMATION
  Report Type: 
  Country: None (occurrence: None)
  Receive Date: 20120821
  Receipt Date: 20120809
  Transmission Date: 20120928
  Serious: Yes (Hospitalization, Other)
  Sender: FDA-Public Use
  Company Number: FR-BIOGENIDEC-2011BI031122

PATIENT
  Age: 40 Year
  Sex: Female
  Weight: 54 kg

DRUGS (6)
  1. ACETAMINOPHEN [Concomitant]
     Indication: PAIN
     Route: 048
  2. TYSABRI [Suspect]
     Indication: MULTIPLE SCLEROSIS
     Route: 042
     Dates: start: 20080415, end: 20110726
  3. ALPRAZOLAM [Concomitant]
     Indication: ANXIOLYTIC THERAPY
     Route: 048
     Dates: end: 20110825
  4. CLONAZEPAM [Concomitant]
     Indication: ANXIOLYTIC THERAPY
     Route: 048
     Dates: end: 20110825
  5. CLOBAZAM [Concomitant]
  6. TAMSULOSIN HCL [Concomitant]
     Indication: HYPERTONIC BLADDER
     Route: 048

REACTIONS (3)
  - CONVULSION [None]
  - IMMUNE RECONSTITUTION SYNDROME [None]
  - PROGRESSIVE MULTIFOCAL LEUKOENCEPHALOPATHY [None]
